FAERS Safety Report 25750845 (Version 2)
Quarter: 2025Q3

REPORT INFORMATION
  Report Type: Spontaneous
  Country: GB (occurrence: GB)
  Receive Date: 20250902
  Receipt Date: 20250919
  Transmission Date: 20251020
  Serious: No
  Sender: PFIZER
  Company Number: GB-PFIZER INC-202500171801

PATIENT
  Age: 16 Year
  Sex: Male

DRUGS (2)
  1. GENOTROPIN [Suspect]
     Active Substance: SOMATROPIN
     Dosage: 1.4 MG, ALTERNATE DAY (1.4/1.6MG ON ALT DAYS)
     Route: 058
  2. GENOTROPIN [Suspect]
     Active Substance: SOMATROPIN
     Dosage: 1.6 MG, ALTERNATE DAY (1.4/1.6MG ON ALT DAYS)
     Route: 058

REACTIONS (2)
  - Device information output issue [Unknown]
  - Drug dose omission by device [Unknown]
